FAERS Safety Report 7246345-1 (Version None)
Quarter: 2011Q1

REPORT INFORMATION
  Report Type: 
  Country: None (occurrence: None)
  Receive Date: 20110126
  Receipt Date: 20110119
  Transmission Date: 20110831
  Serious: Yes (Hospitalization)
  Sender: FDA-Public Use
  Company Number: US-US-EMD SERONO, INC.-7006333

PATIENT
  Sex: Male

DRUGS (3)
  1. SAIZEN [Suspect]
     Dates: start: 20100101
  2. HUMIRA [Suspect]
     Indication: CROHN'S DISEASE
     Dates: start: 20091001
  3. SAIZEN [Suspect]
     Indication: GROWTH HORMONE DEFICIENCY
     Dates: start: 20091224, end: 20100401

REACTIONS (1)
  - PNEUMONIA LEGIONELLA [None]
